FAERS Safety Report 18884135 (Version 1)
Quarter: 2021Q1

REPORT INFORMATION
  Report Type: Spontaneous
  Country: IT (occurrence: IT)
  Receive Date: 20210212
  Receipt Date: 20210212
  Transmission Date: 20210420
  Serious: Yes (Life-Threatening, Other)
  Sender: FDA-Public Use
  Company Number: IT-ACCORD-217166

PATIENT
  Age: 57 Year
  Sex: Female
  Weight: 63 kg

DRUGS (9)
  1. ETOPOSIDE. [Suspect]
     Active Substance: ETOPOSIDE
     Indication: NEUROENDOCRINE CARCINOMA
     Route: 042
     Dates: start: 20201221, end: 20201221
  2. OROTRE [Concomitant]
  3. TACHIPIRINA [Concomitant]
     Active Substance: ACETAMINOPHEN
  4. CISPLATIN. [Suspect]
     Active Substance: CISPLATIN
     Indication: NEUROENDOCRINE CARCINOMA
     Route: 042
     Dates: start: 20201221, end: 20201221
  5. DEURSIL [Concomitant]
     Active Substance: URSODIOL
     Route: 048
  6. OKI [Concomitant]
     Active Substance: KETOPROFEN LYSINE
     Route: 048
  7. TARGIN [Concomitant]
     Active Substance: NALOXONE HYDROCHLORIDE\OXYCODONE HYDROCHLORIDE
     Route: 048
  8. MOVENTIG [Concomitant]
     Active Substance: NALOXEGOL OXALATE
  9. ETOPOSIDE. [Suspect]
     Active Substance: ETOPOSIDE
     Indication: NEUROENDOCRINE CARCINOMA
     Route: 048
     Dates: start: 20201222, end: 20201223

REACTIONS (5)
  - Neutropenia [Recovering/Resolving]
  - Retching [Recovering/Resolving]
  - Nausea [Recovering/Resolving]
  - Abdominal pain [Recovering/Resolving]
  - Asthenia [Recovering/Resolving]

NARRATIVE: CASE EVENT DATE: 20201222
